FAERS Safety Report 7900868-8 (Version None)
Quarter: 2011Q4

REPORT INFORMATION
  Report Type: 
  Country: None (occurrence: None)
  Receive Date: 20111108
  Receipt Date: 20111028
  Transmission Date: 20120403
  Serious: Yes (Hospitalization, Other)
  Sender: FDA-Public Use
  Company Number: US-BAYER-2011-006768

PATIENT
  Age: 41 Year
  Sex: Female
  Weight: 78.503 kg

DRUGS (12)
  1. BETAMETHASONE W/CLOTRIMAZOLE [Concomitant]
  2. YAZ [Suspect]
     Indication: PREMENSTRUAL SYNDROME
  3. IBUPROFEN [Concomitant]
     Indication: MUSCLE SPASMS
  4. YAZ [Suspect]
     Indication: CONTRACEPTION
     Dosage: UNK
     Dates: start: 20090614, end: 20090722
  5. LORAZEPAM [Concomitant]
     Dosage: 0.5 MG, UNK
  6. AZITHROMYCIN [Concomitant]
  7. CLARITIN [Concomitant]
  8. PARACETAMOL W/PROPOXYPHENE [Concomitant]
  9. ASCORBIC ACID [Concomitant]
  10. TYLENOL-500 [Concomitant]
     Indication: ANALGESIC THERAPY
  11. SUDAFED 12 HOUR [Concomitant]
     Indication: HYPERSENSITIVITY
  12. OXYCODONE HCL AND ACETAMINOPHEN [Concomitant]

REACTIONS (27)
  - PALPITATIONS [None]
  - ARRHYTHMIA [None]
  - VOMITING [None]
  - EMOTIONAL DISTRESS [None]
  - SENSATION OF HEAVINESS [None]
  - CONSTIPATION [None]
  - DYSPEPSIA [None]
  - CHEST PAIN [None]
  - ABDOMINAL PAIN [None]
  - HEADACHE [None]
  - CONCUSSION [None]
  - ABDOMINAL DISTENSION [None]
  - HAEMATOCHEZIA [None]
  - PERIPHERAL COLDNESS [None]
  - PARAESTHESIA [None]
  - PELVIC PAIN [None]
  - MENTAL DISORDER [None]
  - PAIN [None]
  - ANXIETY [None]
  - FATIGUE [None]
  - COGNITIVE DISORDER [None]
  - INSOMNIA [None]
  - DISCOMFORT [None]
  - MOOD ALTERED [None]
  - DIARRHOEA [None]
  - TRANSVERSE SINUS THROMBOSIS [None]
  - PAIN IN EXTREMITY [None]
